FAERS Safety Report 17135590 (Version 2)
Quarter: 2020Q1

REPORT INFORMATION
  Report Type: Spontaneous
  Country: FR (occurrence: FR)
  Receive Date: 20191210
  Receipt Date: 20200106
  Transmission Date: 20200409
  Serious: Yes (Other)
  Sender: FDA-Public Use
  Company Number: FR-MYLANLABS-2019M1120595

PATIENT
  Age: 7 Year
  Sex: Male
  Weight: 26.5 kg

DRUGS (18)
  1. FOLINATE DE CALCIUM [Concomitant]
     Active Substance: LEUCOVORIN CALCIUM
     Dosage: UNK
  2. ONDANSETRON ACCORD [Concomitant]
     Active Substance: ONDANSETRON
     Dosage: UNK
  3. PHLOROGLUCINOL/TRIMETHYLPHLOROGLUCINOL ARROW [Concomitant]
     Active Substance: PHLOROGLUCINOL\1,3,5-TRIMETHOXYBENZENE
     Dosage: UNK
  4. HYDROXYZINE RENAUDIN [Concomitant]
     Active Substance: HYDROXYZINE HYDROCHLORIDE
     Dosage: UNK (100 MG /2 ML)
  5. DEBRIDAT                           /00465201/ [Concomitant]
     Active Substance: TRIMEBUTINE MALEATE
     Dosage: UNK
  6. VITABACT [Concomitant]
     Active Substance: PICLOXYDINE DIHYDROCHLORIDE
     Dosage: UNK
  7. PLITICAN [Concomitant]
     Active Substance: ALIZAPRIDE HYDROCHLORIDE
     Dosage: UNK
  8. ENDOXAN                            /00021101/ [Suspect]
     Active Substance: CYCLOPHOSPHAMIDE
     Indication: BURKITT^S LYMPHOMA
     Dosage: 321 MILLIGRAM, CYCLE
     Route: 042
     Dates: start: 20190619
  9. VINCRISTINE HOSPIRA [Suspect]
     Active Substance: VINCRISTINE
     Indication: BURKITT^S LYMPHOMA
     Dosage: 1.07 MILLIGRAM, CYCLE (2 MG/2 ML)
     Route: 042
     Dates: start: 20190619
  10. SOLU-MEDROL [Concomitant]
     Active Substance: METHYLPREDNISOLONE SODIUM SUCCINATE
     Dosage: UNK
  11. METHOTREXATE MYLAN [Suspect]
     Active Substance: METHOTREXATE SODIUM
     Indication: BURKITT^S LYMPHOMA
     Dosage: 64 MILLIGRAM, CYCLE
     Route: 042
     Dates: start: 20190627
  12. DOXORUBICINE ACCORD [Suspect]
     Active Substance: DOXORUBICIN
     Indication: BURKITT^S LYMPHOMA
     Dosage: 64 MILLIGRAM, CYCLE
     Route: 042
     Dates: start: 20190627
  13. FORLAX [Concomitant]
     Active Substance: POLYETHYLENE GLYCOL 4000
     Dosage: UNK
  14. METHOTREXATE MYLAN [Suspect]
     Active Substance: METHOTREXATE SODIUM
     Dosage: 3200 MILLIGRAM, CYCLE
     Route: 042
     Dates: start: 20190626
  15. DOLIPRANE [Concomitant]
     Active Substance: ACETAMINOPHEN
     Dosage: UNK
  16. FUROSEMIDE RENAUDIN [Concomitant]
     Active Substance: FUROSEMIDE
     Dosage: UNK
  17. TRUXIMA [Suspect]
     Active Substance: RITUXIMAB-ABBS
     Indication: BURKITT^S LYMPHOMA
     Dosage: 400 MILLIGRAM, CYCLE
     Route: 042
     Dates: start: 20190624
  18. PANTOPRAZOLE SODIUM. [Concomitant]
     Active Substance: PANTOPRAZOLE SODIUM
     Dosage: UNK

REACTIONS (1)
  - Device related thrombosis [Recovered/Resolved]

NARRATIVE: CASE EVENT DATE: 20190716
